FAERS Safety Report 8107421-4 (Version None)
Quarter: 2012Q1

REPORT INFORMATION
  Report Type: 
  Country: None (occurrence: None)
  Receive Date: 20120202
  Receipt Date: 20120127
  Transmission Date: 20120608
  Serious: Yes (Death, Hospitalization)
  Sender: FDA-Public Use
  Company Number: JP-ELI_LILLY_AND_COMPANY-JP201109005645

PATIENT
  Sex: Male
  Weight: 52.9 kg

DRUGS (2)
  1. GEMZAR [Suspect]
     Indication: BLADDER SQUAMOUS CELL CARCINOMA STAGE UNSPECIFIED
     Dosage: 1500 MG, DAY 1, 8 AND 15
     Route: 042
     Dates: start: 20110708, end: 20110722
  2. FAMOTIDINE [Concomitant]
     Dosage: 20 MG, QD
     Route: 048
     Dates: start: 20110716, end: 20110907

REACTIONS (3)
  - INTERSTITIAL LUNG DISEASE [None]
  - UROSTOMY [None]
  - URINARY CYSTECTOMY [None]
